FAERS Safety Report 21744643 (Version 1)
Quarter: 2022Q4

REPORT INFORMATION
  Report Type: Spontaneous
  Country: US (occurrence: US)
  Receive Date: 20221218
  Receipt Date: 20221218
  Transmission Date: 20230113
  Serious: No
  Sender: FDA-Public Use
  Company Number: US-BRISTOL-MYERS SQUIBB COMPANY-2022-154571

PATIENT
  Age: 84 Year
  Sex: Female

DRUGS (11)
  1. ELIQUIS [Suspect]
     Active Substance: APIXABAN
     Indication: Cerebrovascular accident prophylaxis
     Route: 048
     Dates: start: 20221206
  2. DILTIAZEM 24H (ERCD180MGCP) HCI [Concomitant]
     Indication: Product used for unknown indication
     Dosage: DILTIAZEM 24H (ERCD180MGCP) HCI EXTENDED RELEASE ONCE DAILY
  3. SYNTHROID [Concomitant]
     Active Substance: LEVOTHYROXINE SODIUM
     Indication: Product used for unknown indication
  4. OMEPRAZOLE [Concomitant]
     Active Substance: OMEPRAZOLE
     Indication: Product used for unknown indication
  5. CRESTOR [Concomitant]
     Active Substance: ROSUVASTATIN CALCIUM
     Indication: Product used for unknown indication
  6. CALCIUM CITRATE;VITAMIN D NOS [Concomitant]
     Indication: Product used for unknown indication
     Dosage: CAL CITRATE 600 MG + D3 800 IU 1 TWICE DAILY, D3 1000 TWICE DAILY
  7. MINERALS\VITAMINS [Concomitant]
     Active Substance: MINERALS\VITAMINS
     Indication: Product used for unknown indication
  8. GABAPENTIN [Concomitant]
     Active Substance: GABAPENTIN
     Indication: Product used for unknown indication
  9. ANORO ELLIPTA [Concomitant]
     Active Substance: UMECLIDINIUM BROMIDE\VILANTEROL TRIFENATATE
     Indication: Product used for unknown indication
  10. REMERON [Concomitant]
     Active Substance: MIRTAZAPINE
     Indication: Product used for unknown indication
  11. XANAX [Concomitant]
     Active Substance: ALPRAZOLAM
     Indication: Product used for unknown indication

REACTIONS (4)
  - Insomnia [Not Recovered/Not Resolved]
  - Micturition urgency [Unknown]
  - Condition aggravated [Unknown]
  - Stress [Unknown]

NARRATIVE: CASE EVENT DATE: 20221206
